FAERS Safety Report 6385893-3 (Version None)
Quarter: 2009Q4

REPORT INFORMATION
  Report Type: 
  Country: None (occurrence: None)
  Receive Date: 20091002
  Receipt Date: 20090109
  Transmission Date: 20100525
  Serious: No
  Sender: FDA-Public Use
  Company Number: US-ASTRAZENECA-2009UW00800

PATIENT
  Age: 59 Year
  Sex: Female
  Weight: 61.2 kg

DRUGS (5)
  1. ARIMIDEX [Suspect]
     Indication: BREAST CANCER FEMALE
     Dosage: 1 MG
     Route: 048
     Dates: end: 20080101
  2. ARIMIDEX [Suspect]
     Indication: LUNG NEOPLASM MALIGNANT
     Dosage: 1 MG
     Route: 048
     Dates: end: 20080101
  3. ARIMIDEX [Suspect]
     Dosage: 1 MG
     Route: 048
     Dates: start: 20081101
  4. ARIMIDEX [Suspect]
     Dosage: 1 MG
     Route: 048
     Dates: start: 20081101
  5. ATENOLOL [Concomitant]

REACTIONS (7)
  - DECREASED APPETITE [None]
  - DIZZINESS [None]
  - DYSGEUSIA [None]
  - HEADACHE [None]
  - HYPOAESTHESIA [None]
  - INSOMNIA [None]
  - PAIN [None]
